FAERS Safety Report 7460241-6 (Version None)
Quarter: 2011Q2

REPORT INFORMATION
  Report Type: 
  Country: None (occurrence: None)
  Receive Date: 20110505
  Receipt Date: 20110420
  Transmission Date: 20111010
  Serious: Yes (Other)
  Sender: FDA-Public Use
  Company Number: US-JNJFOC-2011001700

PATIENT
  Sex: Female
  Weight: 66.67 kg

DRUGS (10)
  1. POTASSIUM CHLORIDE [Concomitant]
  2. DIGOXIN [Concomitant]
  3. CLONAZEPAM [Concomitant]
  4. WARFARIN [Concomitant]
     Indication: ANTICOAGULANT THERAPY
     Dosage: DAILY DOSE TEXT: 2MG AT AN UNKNOWN FREQUENCY
     Route: 065
  5. DILTIAZEM [Concomitant]
  6. NICOTINE GUM [Suspect]
     Indication: SMOKING CESSATION THERAPY
     Route: 048
  7. AVELOX [Concomitant]
  8. NICOTROL [Suspect]
     Indication: SMOKING CESSATION THERAPY
     Route: 055
  9. NICOTROL [Suspect]
     Route: 055
  10. FUROSEMIDE [Concomitant]

REACTIONS (5)
  - MALAISE [None]
  - TOOTH LOSS [None]
  - DRUG DEPENDENCE [None]
  - DEVICE FAILURE [None]
  - FLUID RETENTION [None]
